FAERS Safety Report 22208931 (Version 2)
Quarter: 2023Q2

REPORT INFORMATION
  Report Type: Spontaneous
  Country: US (occurrence: US)
  Receive Date: 20230413
  Receipt Date: 20230419
  Transmission Date: 20230722
  Serious: No
  Sender: FDA-Public Use
  Company Number: US-PFIZER INC-202300149937

PATIENT
  Age: 69 Year
  Sex: Female

DRUGS (1)
  1. SILVADENE [Suspect]
     Active Substance: SILVER SULFADIAZINE
     Indication: Urethral necrosis
     Dosage: UNK
     Route: 061

REACTIONS (2)
  - Off label use [Unknown]
  - Product prescribing issue [Unknown]
